FAERS Safety Report 18372127 (Version 1)
Quarter: 2020Q4

REPORT INFORMATION
  Report Type: Spontaneous
  Country: CL (occurrence: CL)
  Receive Date: 20201012
  Receipt Date: 20201012
  Transmission Date: 20210114
  Serious: Yes (Other)
  Sender: FDA-Public Use
  Company Number: CL-AMNEAL PHARMACEUTICALS-2020-AMRX-03114

PATIENT
  Age: 28 Year
  Sex: Male

DRUGS (3)
  1. CLOBAZAM. [Concomitant]
     Active Substance: CLOBAZAM
     Indication: EPILEPSY
     Dosage: 5 MILLIGRAM, DAILY
     Route: 065
  2. LAMOTRIGINE ODT [Suspect]
     Active Substance: LAMOTRIGINE
     Indication: EPILEPSY
     Dosage: 25 MILLIGRAM
     Route: 065
  3. LAMOTRIGINE ODT [Suspect]
     Active Substance: LAMOTRIGINE
     Dosage: 100 MILLIGRAM, DAILY, INCREASED DOSE
     Route: 065

REACTIONS (1)
  - Acute febrile neutrophilic dermatosis [Recovered/Resolved]
